FAERS Safety Report 8925968 (Version 2)
Quarter: 2013Q1

REPORT INFORMATION
  Report Type: Spontaneous
  Country: US (occurrence: US)
  Receive Date: 20121126
  Receipt Date: 20130307
  Transmission Date: 20140127
  Serious: Yes (Other)
  Sender: FDA-Public Use
  Company Number: US-ASTRAZENECA-2012SE80763

PATIENT
  Age: 52 Year
  Sex: Female

DRUGS (4)
  1. NEXIUM [Suspect]
     Route: 048
  2. OMEPRAZOLE [Suspect]
     Route: 048
  3. PANTOPRAZOLE [Concomitant]
  4. PREVACID [Concomitant]

REACTIONS (4)
  - Myocardial infarction [Unknown]
  - Dyspepsia [Unknown]
  - Oesophageal spasm [Unknown]
  - Gastrooesophageal reflux disease [Unknown]
